FAERS Safety Report 5550634-6 (Version None)
Quarter: 2007Q4

REPORT INFORMATION
  Report Type: 
  Country: None (occurrence: None)
  Receive Date: 20071210
  Receipt Date: 20071126
  Transmission Date: 20080405
  Serious: Yes (Death, Life-Threatening, Other)
  Sender: FDA-Public Use
  Company Number: 43262

PATIENT
  Age: 38 Year
  Sex: Female

DRUGS (2)
  1. PROPOFOL [Suspect]
  2. DIPRIVAN [Concomitant]

REACTIONS (3)
  - DRUG ABUSER [None]
  - OVERDOSE [None]
  - PULMONARY OEDEMA [None]
